FAERS Safety Report 5600623-8 (Version None)
Quarter: 2008Q1

REPORT INFORMATION
  Report Type: 
  Country: None (occurrence: None)
  Receive Date: 20080123
  Receipt Date: 20080108
  Transmission Date: 20080703
  Serious: Yes (Hospitalization)
  Sender: FDA-Public Use
  Company Number: NZ-GENENTECH-200467

PATIENT
  Sex: Female
  Weight: 72 kg

DRUGS (6)
  1. TRASTUZUMAB [Suspect]
     Indication: BREAST CANCER METASTATIC
     Dosage: 280 MG, SINGLE
     Route: 042
     Dates: start: 20030318, end: 20030318
  2. TRASTUZUMAB [Suspect]
     Dosage: 2 MG/KG, Q3W
     Route: 042
     Dates: start: 20030325
  3. DOCETAXEL [Suspect]
     Indication: BREAST CANCER METASTATIC
     Dosage: 140 MG, Q3W
     Route: 042
     Dates: start: 20030319
  4. CARBOPLATIN [Suspect]
     Indication: BREAST CANCER METASTATIC
     Dosage: 900 MG, Q3W
     Route: 042
     Dates: start: 20030319
  5. DEXAMETHASONE TAB [Concomitant]
     Indication: PROPHYLAXIS
     Dates: start: 20030318, end: 20030409
  6. PROCHLORPERAZINE [Concomitant]
     Indication: PROPHYLAXIS
     Dates: start: 20030320

REACTIONS (1)
  - MYALGIA [None]
